FAERS Safety Report 6853825-7 (Version None)
Quarter: 2010Q3

REPORT INFORMATION
  Report Type: 
  Country: None (occurrence: None)
  Receive Date: 20100717
  Receipt Date: 20071217
  Transmission Date: 20110219
  Serious: No
  Sender: FDA-Public Use
  Company Number: US-PFIZER INC-2007107270

PATIENT
  Sex: Female
  Weight: 65.454 kg

DRUGS (4)
  1. CHANTIX [Suspect]
     Indication: SMOKING CESSATION THERAPY
     Dates: start: 20071208, end: 20071216
  2. PROZAC [Concomitant]
  3. HYDROCHLOROTHIAZIDE [Concomitant]
  4. MIRALAX [Concomitant]

REACTIONS (5)
  - CRYING [None]
  - DEPRESSION [None]
  - MALAISE [None]
  - NERVOUSNESS [None]
  - UNEVALUABLE EVENT [None]
